FAERS Safety Report 9459575 (Version 2)
Quarter: 2013Q3

REPORT INFORMATION
  Report Type: Report from Study
  Country: HU (occurrence: HU)
  Receive Date: 20130815
  Receipt Date: 20130823
  Transmission Date: 20140515
  Serious: Yes (Hospitalization)
  Sender: FDA-Public Use
  Company Number: HU-ROCHE-1227039

PATIENT
  Sex: Female

DRUGS (1)
  1. XELODA [Suspect]
     Indication: COLORECTAL CANCER
     Route: 048
     Dates: start: 20130507

REACTIONS (3)
  - Dehydration [Not Recovered/Not Resolved]
  - Circulatory collapse [Unknown]
  - Palmar-plantar erythrodysaesthesia syndrome [Unknown]
